FAERS Safety Report 16031659 (Version 2)
Quarter: 2019Q1

REPORT INFORMATION
  Report Type: Spontaneous
  Country: US (occurrence: US)
  Receive Date: 20190304
  Receipt Date: 20190307
  Transmission Date: 20190418
  Serious: Yes (Other)
  Sender: FDA-Public Use
  Company Number: US-ASTRAZENECA-2018SF00416

PATIENT
  Sex: Female

DRUGS (9)
  1. NEXIUM [Suspect]
     Active Substance: ESOMEPRAZOLE MAGNESIUM
     Route: 048
     Dates: start: 20010914
  2. ATENOLOL. [Concomitant]
     Active Substance: ATENOLOL
  3. PREVACID [Suspect]
     Active Substance: LANSOPRAZOLE
     Route: 048
     Dates: start: 20001220
  4. VIOXX [Concomitant]
     Active Substance: ROFECOXIB
  5. ZOCOR [Concomitant]
     Active Substance: SIMVASTATIN
  6. NEXIUM [Suspect]
     Active Substance: ESOMEPRAZOLE MAGNESIUM
     Route: 048
     Dates: start: 20010914, end: 20140119
  7. TETRACYCLINE [Concomitant]
     Active Substance: TETRACYCLINE
  8. NEXIUM [Suspect]
     Active Substance: ESOMEPRAZOLE MAGNESIUM
     Route: 048
     Dates: start: 200012, end: 200201
  9. PREVACID [Suspect]
     Active Substance: LANSOPRAZOLE
     Route: 065
     Dates: start: 200012, end: 200201

REACTIONS (2)
  - Chronic kidney disease [Unknown]
  - Renal injury [Unknown]
